FAERS Safety Report 8487857-2 (Version None)
Quarter: 2012Q3

REPORT INFORMATION
  Report Type: 
  Country: None (occurrence: None)
  Receive Date: 20120705
  Receipt Date: 20120622
  Transmission Date: 20120928
  Serious: Yes (Other)
  Sender: FDA-Public Use
  Company Number: FR-ELI_LILLY_AND_COMPANY-FR201203001276

PATIENT
  Age: 70 Year
  Sex: Female

DRUGS (5)
  1. POTASSIUM CHLORIDE [Concomitant]
     Indication: DIURETIC THERAPY
     Dosage: 1000 DF, UNK
  2. LASIX [Concomitant]
     Indication: HYPERTENSION
  3. PERINDOPRIL ERBUMINE [Concomitant]
     Indication: HYPERTENSION
  4. PENTOXIFYLLINE [Concomitant]
  5. FORTEO [Suspect]
     Indication: OSTEOPOROSIS
     Dosage: 20 UG, QD
     Route: 058
     Dates: start: 20110616

REACTIONS (4)
  - CHOLELITHIASIS [None]
  - INTRA-ABDOMINAL HAEMATOMA [None]
  - PAIN IN EXTREMITY [None]
  - ABDOMINAL PAIN [None]
